FAERS Safety Report 23542767 (Version 1)
Quarter: 2024Q1

REPORT INFORMATION
  Report Type: Spontaneous
  Country: GB (occurrence: GB)
  Receive Date: 20240220
  Receipt Date: 20240220
  Transmission Date: 20240410
  Serious: Yes (Hospitalization)
  Sender: FDA-Public Use
  Company Number: None

PATIENT
  Age: 38 Year
  Sex: Male

DRUGS (15)
  1. WARFARIN [Suspect]
     Active Substance: WARFARIN
     Dosage: AS DIRECTED - SEE WARFARIN NOTE - HELD CURRENTLY
     Route: 065
     Dates: start: 20230728
  2. WARFARIN [Suspect]
     Active Substance: WARFARIN
     Dosage: AS DIRECTED
     Route: 065
     Dates: start: 20230728
  3. WARFARIN [Suspect]
     Active Substance: WARFARIN
     Dosage: AS DIRECTED
     Route: 065
     Dates: start: 20230728
  4. LAMOTRIGINE [Concomitant]
     Active Substance: LAMOTRIGINE
     Indication: Pain in extremity
     Dosage: NOT EP - PER WCNN PAIN CLINIC
     Dates: start: 20230728
  5. CLARITHROMYCIN [Suspect]
     Active Substance: CLARITHROMYCIN
     Dosage: PATIENT HAD COMPLETED COURSE OF CLARITHROMYCIN PRIOR TO ADMISSION
     Route: 065
     Dates: start: 20230818
  6. ACETAMINOPHEN [Concomitant]
     Active Substance: ACETAMINOPHEN
     Dosage: TIME INTERVAL: AS NECESSARY: 1-2 QDS
     Dates: start: 20230728
  7. LEVOTHYROXINE [Concomitant]
     Active Substance: LEVOTHYROXINE\LEVOTHYROXINE SODIUM
     Dosage: EVERY MORNING
     Dates: start: 20230728
  8. NAPROXEN [Concomitant]
     Active Substance: NAPROXEN
  9. UNSPECIFIED INGREDIENT [Concomitant]
     Active Substance: UNSPECIFIED INGREDIENT
     Dosage: TIME INTERVAL: AS NECESSARY
     Dates: start: 20230728
  10. UNSPECIFIED INGREDIENT [Concomitant]
     Active Substance: UNSPECIFIED INGREDIENT
     Dosage: TIME INTERVAL: AS NECESSARY
     Dates: start: 20211022
  11. OMEPRAZOLE [Concomitant]
     Active Substance: OMEPRAZOLE
     Dates: start: 20230728
  12. ESOMEPRAZOLE [Concomitant]
     Active Substance: ESOMEPRAZOLE
  13. MORPHINE SULFATE [Concomitant]
     Active Substance: MORPHINE SULFATE
     Dates: start: 20230728
  14. KETOPROFEN [Concomitant]
     Active Substance: KETOPROFEN
  15. SERTRALINE [Concomitant]
     Active Substance: SERTRALINE HYDROCHLORIDE
     Dates: start: 20230728

REACTIONS (3)
  - Haematuria [Recovered/Resolved]
  - Drug interaction [Unknown]
  - International normalised ratio increased [Unknown]
